FAERS Safety Report 24980406 (Version 1)
Quarter: 2025Q1

REPORT INFORMATION
  Report Type: Spontaneous
  Country: US (occurrence: None)
  Receive Date: 20250214
  Receipt Date: 20250214
  Transmission Date: 20250408
  Serious: Yes (Other)
  Sender: FDA-CTU
  Company Number: None

PATIENT
  Age: 64 Year
  Sex: Female
  Weight: 77.4 kg

DRUGS (1)
  1. OPSYNVI [Suspect]
     Active Substance: MACITENTAN\TADALAFIL
     Dosage: FREQUENCY : DAILY;?
     Route: 048
     Dates: start: 20250212, end: 20250212

REACTIONS (2)
  - Chills [None]
  - Therapy change [None]

NARRATIVE: CASE EVENT DATE: 20250212
